FAERS Safety Report 15148284 (Version 3)
Quarter: 2018Q3

REPORT INFORMATION
  Report Type: Spontaneous
  Country: EG (occurrence: EG)
  Receive Date: 20180716
  Receipt Date: 20180821
  Transmission Date: 20181010
  Serious: Yes (Hospitalization)
  Sender: FDA-Public Use
  Company Number: EG-JNJFOC-20180713527

PATIENT
  Age: 70 Year
  Sex: Male

DRUGS (3)
  1. SULPRIDE [Suspect]
     Active Substance: SULPIRIDE
     Indication: PRODUCT USED FOR UNKNOWN INDICATION
     Route: 065
  2. ZYTIGA [Suspect]
     Active Substance: ABIRATERONE ACETATE
     Indication: PROSTATE CANCER
     Dosage: 250 MG 3 TABS/DAY
     Route: 048
  3. PREDNISOLONE. [Concomitant]
     Active Substance: PREDNISOLONE
     Indication: PROSTATE CANCER
     Route: 065

REACTIONS (8)
  - Hypomagnesaemia [Recovered/Resolved]
  - Mucosal inflammation [Recovered/Resolved]
  - Oedema peripheral [Recovered/Resolved]
  - Ascites [Not Recovered/Not Resolved]
  - Hypoalbuminaemia [Recovered/Resolved]
  - Oesophagitis [Recovered/Resolved]
  - Hyponatraemia [Recovered/Resolved]
  - Loss of consciousness [Recovered/Resolved]
